FAERS Safety Report 7772550-1 (Version None)
Quarter: 2011Q3

REPORT INFORMATION
  Report Type: 
  Country: None (occurrence: None)
  Receive Date: 20110922
  Receipt Date: 20101102
  Transmission Date: 20111222
  Serious: No
  Sender: FDA-Public Use
  Company Number: US-ASTRAZENECA-2010SE52309

PATIENT
  Age: 72 Year
  Sex: Male

DRUGS (10)
  1. SEROQUEL [Suspect]
     Route: 048
     Dates: start: 20000101, end: 20101001
  2. SEROQUEL [Suspect]
     Dosage: CUT BACK ON HIS DOSE OF SEROQUEL TO 1 1/2 HALF TABLETS PER DAY
     Route: 048
     Dates: start: 20101001
  3. ASCRIPTALINE [Concomitant]
  4. SEROQUEL [Suspect]
     Route: 048
     Dates: start: 20000101, end: 20101001
  5. SILICANE [Concomitant]
  6. LORAZEPAM [Concomitant]
  7. CARDOPA [Concomitant]
  8. SEROQUEL [Suspect]
     Indication: HALLUCINATION
     Dosage: A FEW DOSES
     Route: 048
     Dates: start: 20090101, end: 20090101
  9. SEROQUEL [Suspect]
     Indication: INSOMNIA
     Dosage: A FEW DOSES
     Route: 048
     Dates: start: 20090101, end: 20090101
  10. SEROQUEL [Suspect]
     Dosage: CUT BACK ON HIS DOSE OF SEROQUEL TO 1 1/2 HALF TABLETS PER DAY
     Route: 048
     Dates: start: 20101001

REACTIONS (4)
  - MIDDLE INSOMNIA [None]
  - INCORRECT DOSE ADMINISTERED [None]
  - PARONYCHIA [None]
  - WRONG DRUG ADMINISTERED [None]
